FAERS Safety Report 8902130 (Version 2)
Quarter: 2012Q4

REPORT INFORMATION
  Report Type: Report from Study
  Country: GB (occurrence: GB)
  Receive Date: 20121112
  Receipt Date: 20121130
  Transmission Date: 20130627
  Serious: Yes (Death)
  Sender: FDA-Public Use
  Company Number: GB-JNJFOC-20121103895

PATIENT
  Age: 77 Year
  Sex: Male

DRUGS (1)
  1. REMICADE [Suspect]
     Indication: RHEUMATOID ARTHRITIS
     Route: 042
     Dates: start: 20021017, end: 20030513

REACTIONS (3)
  - Metastatic neoplasm [Fatal]
  - Rectosigmoid cancer [Fatal]
  - Cerebrovascular accident [Fatal]
